FAERS Safety Report 5013421-3 (Version None)
Quarter: 2006Q2

REPORT INFORMATION
  Report Type: 
  Country: None (occurrence: None)
  Receive Date: 20060530
  Receipt Date: 20060524
  Transmission Date: 20061013
  Serious: Yes (Hospitalization)
  Sender: FDA-Public Use
  Company Number: JP-JNJFOC-20060405819

PATIENT
  Age: 65 Year
  Sex: Female

DRUGS (14)
  1. OXYBUTYNIN HYDROCHLORIDE [Suspect]
     Indication: POLLAKIURIA
     Route: 048
  2. CABAGIN KOWA [Suspect]
  3. CABAGIN KOWA [Suspect]
  4. CABAGIN KOWA [Suspect]
  5. CABAGIN KOWA [Suspect]
  6. CABAGIN KOWA [Suspect]
  7. CABAGIN KOWA [Suspect]
  8. CABAGIN KOWA [Suspect]
  9. CABAGIN KOWA [Suspect]
  10. CABAGIN KOWA [Suspect]
     Indication: DRUG USE FOR UNKNOWN INDICATION
  11. LIVALO [Concomitant]
  12. EVISTA [Concomitant]
  13. TENORMIN [Concomitant]
  14. ROCALTROL [Concomitant]

REACTIONS (1)
  - HEPATITIS FULMINANT [None]
